FAERS Safety Report 18103094 (Version 2)
Quarter: 2020Q4

REPORT INFORMATION
  Report Type: Report from Study
  Country: JP (occurrence: JP)
  Receive Date: 20200803
  Receipt Date: 20201030
  Transmission Date: 20210113
  Serious: Yes (Hospitalization)
  Sender: FDA-Public Use
  Company Number: PHJP2017JP027806

PATIENT
  Age: 52 Year
  Sex: Female
  Weight: 44.4 kg

DRUGS (6)
  1. EVEROLIMUS TABLETS AF [Suspect]
     Active Substance: EVEROLIMUS
     Dosage: 5 MG, UNK
     Route: 048
     Dates: start: 20170915
  2. EXEMESTANE. [Suspect]
     Active Substance: EXEMESTANE
     Indication: BREAST CANCER METASTATIC
     Dosage: 25 MG, QD
     Route: 048
     Dates: start: 20170811, end: 20170905
  3. SENNOSIDE TABLETS [SENNOSIDE A+B] [Suspect]
     Active Substance: SENNOSIDES A AND B
     Indication: CONSTIPATION
     Dosage: 24 MG, QD
     Route: 048
     Dates: end: 20170905
  4. MAGNEESIUM [Suspect]
     Active Substance: MAGNESIUM
     Indication: CONSTIPATION
     Dosage: 330 MG, BID
     Route: 048
     Dates: end: 20170905
  5. OXYCONTIN [Suspect]
     Active Substance: OXYCODONE HYDROCHLORIDE
     Indication: CANCER PAIN
     Dosage: 20 MG, BID
     Route: 048
  6. EVEROLIMUS TABLETS AF [Suspect]
     Active Substance: EVEROLIMUS
     Indication: BREAST CANCER METASTATIC
     Dosage: UNK
     Route: 048
     Dates: start: 20170811, end: 20170905

REACTIONS (2)
  - Abdominal pain [Recovered/Resolved]
  - Diarrhoea [Recovered/Resolved]

NARRATIVE: CASE EVENT DATE: 20170903
